FAERS Safety Report 10055578 (Version 1)
Quarter: 2014Q2

REPORT INFORMATION
  Report Type: Spontaneous
  Country: US (occurrence: US)
  Receive Date: 20140403
  Receipt Date: 20140403
  Transmission Date: 20141212
  Serious: No
  Sender: FDA-Public Use
  Company Number: US-SHIRE-US201400831

PATIENT
  Age: 55 Year
  Sex: Female

DRUGS (1)
  1. VYVANSE [Suspect]
     Indication: CARDIAC DISORDER
     Dosage: 40 MG, 1X/DAY:QD
     Route: 048
     Dates: start: 201212

REACTIONS (2)
  - Therapeutic response changed [Not Recovered/Not Resolved]
  - Off label use [Not Recovered/Not Resolved]
